FAERS Safety Report 9153693 (Version 1)
Quarter: 2013Q1

REPORT INFORMATION
  Report Type: Spontaneous
  Country: US (occurrence: None)
  Receive Date: 20130206
  Receipt Date: 20130206
  Transmission Date: 20140127
  Serious: Yes (Hospitalization)
  Sender: FDA-Public Use
  Company Number: IMP_06315_2013

PATIENT
  Age: 45 Year
  Sex: Female

DRUGS (2)
  1. CABERGOLINE [Suspect]
     Indication: HYPERPROLACTINAEMIA
     Route: 048
  2. DAILY MULTIVITAMIN [Concomitant]

REACTIONS (5)
  - Energy increased [None]
  - Tachyphrenia [None]
  - Grandiosity [None]
  - Speech disorder [None]
  - Irritability [None]
